FAERS Safety Report 4554982-8 (Version None)
Quarter: 2005Q1

REPORT INFORMATION
  Report Type: 
  Country: None (occurrence: None)
  Receive Date: 20050118
  Receipt Date: 20050108
  Transmission Date: 20050727
  Serious: Yes (Hospitalization, Congenital Anomaly)
  Sender: FDA-Public Use
  Company Number: M25162

PATIENT
  Sex: Male

DRUGS (8)
  1. ACETAMINOPHEN [Suspect]
  2. SPIRONOLACTONE [Suspect]
  3. PENICILLAMINE [Suspect]
  4. FRUSEMIDE [Suspect]
  5. DEXAMETHASONE [Suspect]
  6. POTASSIUM CHLORIDE [Suspect]
  7. ASPIRIN [Suspect]
  8. FERROGRAD C [Suspect]

REACTIONS (3)
  - ADRENOGENITAL SYNDROME [None]
  - CRYPTORCHISM [None]
  - DRUG EXPOSURE DURING PREGNANCY [None]
